FAERS Safety Report 9559759 (Version 1)
Quarter: 2013Q3

REPORT INFORMATION
  Report Type: Spontaneous
  Country: US (occurrence: None)
  Receive Date: 20130906
  Receipt Date: 20130906
  Transmission Date: 20140515
  Serious: Yes (Other)
  Sender: FDA-Public Use
  Company Number: 163-POMAL-13080404

PATIENT
  Age: 63 Year
  Sex: Female
  Weight: 62.6 kg

DRUGS (13)
  1. POMALYST (POMALIDOMIDE) (2 MILLIGRAM, CAPSULES) [Suspect]
     Indication: PLASMA CELL MYELOMA
     Dosage: 2 MG, 21 IN 28 D, PO
     Route: 048
     Dates: start: 20130423
  2. CALCIUM (CALCIUM) [Concomitant]
  3. BACTRIM (BACTRIM) [Concomitant]
  4. FOSAMAX (ALENDRONATE SODIUM) [Concomitant]
  5. ASPIRIN (ACETYLSALICYLIC ACID) [Concomitant]
  6. CALCIUM+VITAMIN D (LEKOVIT CA) [Concomitant]
  7. DIFLUCAN (FLUCONAZOLE) [Concomitant]
  8. PREDNISONE (PREDNISONE) [Concomitant]
  9. CYCLOPHOSPHAMIDE (CYCLOPHOSPHAMIDE) [Concomitant]
  10. ACYCLOVIR (ACICLOVIR) [Concomitant]
  11. OMEPRAZOLE (OMEPRAZOLE) [Concomitant]
  12. LISINOPRIL-HCTZ (PRINZIDE) [Concomitant]
  13. BISOPROLOL-HCTZ (BISELECT) [Concomitant]

REACTIONS (4)
  - Red blood cell count decreased [None]
  - White blood cell count decreased [None]
  - Neutrophil count decreased [None]
  - Platelet count decreased [None]
